FAERS Safety Report 12312618 (Version 1)
Quarter: 2016Q2

REPORT INFORMATION
  Report Type: Spontaneous
  Country: CA (occurrence: CA)
  Receive Date: 20160428
  Receipt Date: 20160428
  Transmission Date: 20160815
  Serious: Yes (Other)
  Sender: FDA-Public Use
  Company Number: CA-ROCHE-1747535

PATIENT
  Sex: Female

DRUGS (13)
  1. RIBAVIRIN. [Suspect]
     Active Substance: RIBAVIRIN
     Route: 048
  2. PEGASYS [Suspect]
     Active Substance: PEGINTERFERON ALFA-2A
     Route: 058
  3. PEGASYS [Suspect]
     Active Substance: PEGINTERFERON ALFA-2A
     Route: 058
  4. PEGASYS [Suspect]
     Active Substance: PEGINTERFERON ALFA-2A
     Dosage: THERAPY DURATION: 507.0 DAY(S)
     Route: 058
  5. RIBAVIRIN. [Suspect]
     Active Substance: RIBAVIRIN
     Route: 048
  6. PEGASYS [Suspect]
     Active Substance: PEGINTERFERON ALFA-2A
     Indication: HEPATITIS C
     Route: 058
  7. RIBAVIRIN. [Suspect]
     Active Substance: RIBAVIRIN
     Indication: PRODUCT USED FOR UNKNOWN INDICATION
     Route: 048
  8. RIBAVIRIN. [Suspect]
     Active Substance: RIBAVIRIN
     Route: 048
  9. RIBAVIRIN. [Suspect]
     Active Substance: RIBAVIRIN
     Route: 048
  10. SOFOSBUVIR [Suspect]
     Active Substance: SOFOSBUVIR
     Indication: HEPATITIS C
     Route: 048
  11. RIBAVIRIN. [Suspect]
     Active Substance: RIBAVIRIN
     Route: 048
  12. RIBAVIRIN. [Suspect]
     Active Substance: RIBAVIRIN
     Route: 048
  13. VICTRELIS [Suspect]
     Active Substance: BOCEPREVIR
     Indication: HEPATITIS C
     Route: 048

REACTIONS (17)
  - Bone pain [Unknown]
  - Fatigue [Unknown]
  - Renal colic [Unknown]
  - White blood cell count decreased [Unknown]
  - Alanine aminotransferase increased [Unknown]
  - Blood thyroid stimulating hormone decreased [Unknown]
  - Dysuria [Unknown]
  - Red blood cell count decreased [Unknown]
  - Dizziness [Unknown]
  - Haemoglobin decreased [Unknown]
  - Pollakiuria [Unknown]
  - Urinary tract infection [Unknown]
  - Viral load increased [Unknown]
  - Gastrooesophageal reflux disease [Unknown]
  - Haematocrit decreased [Unknown]
  - Neutrophil count decreased [Unknown]
  - Platelet count decreased [Unknown]
